FAERS Safety Report 21462874 (Version 1)
Quarter: 2022Q4

REPORT INFORMATION
  Report Type: Spontaneous
  Country: US (occurrence: US)
  Receive Date: 20221017
  Receipt Date: 20221017
  Transmission Date: 20230113
  Serious: No
  Sender: FDA-Public Use
  Company Number: US-NOVAST LABORATORIES INC.-2022NOV000251

PATIENT

DRUGS (1)
  1. MICROGESTIN FE 1/20 [Suspect]
     Active Substance: ETHINYL ESTRADIOL\NORETHINDRONE ACETATE
     Indication: Oophorectomy
     Dosage: UNK
     Route: 065

REACTIONS (3)
  - Abdominal distension [Unknown]
  - Feeling abnormal [Unknown]
  - Product use in unapproved indication [Unknown]
